FAERS Safety Report 5855733-7 (Version None)
Quarter: 2008Q3

REPORT INFORMATION
  Report Type: 
  Country: None (occurrence: None)
  Receive Date: 20080825
  Receipt Date: 20080818
  Transmission Date: 20090109
  Serious: Yes (Hospitalization)
  Sender: FDA-Public Use
  Company Number: FR-CELGENEUS-056-C5013-07070921

PATIENT
  Sex: Female
  Weight: 77 kg

DRUGS (7)
  1. REVLIMID [Suspect]
     Indication: LYMPHOMA
     Route: 048
     Dates: start: 20070706, end: 20070718
  2. REVLIMID [Suspect]
     Route: 048
     Dates: start: 20070720
  3. LEVOTHYROX [Concomitant]
     Indication: HYPOTHYROIDISM
     Route: 048
     Dates: start: 19900101
  4. CARBAMAZEPINE [Concomitant]
     Indication: PARTIAL SEIZURES
     Route: 051
     Dates: start: 20001124
  5. PROVAMES [Concomitant]
     Indication: HORMONE REPLACEMENT THERAPY
     Route: 065
     Dates: start: 19740101
  6. PROGESTERONE BIOGARAN [Concomitant]
     Indication: HORMONE REPLACEMENT THERAPY
     Route: 065
     Dates: start: 19740101
  7. CELIPROLOL [Concomitant]
     Indication: HYPOTHYROIDISM
     Route: 065
     Dates: start: 19900101

REACTIONS (1)
  - EPILEPSY [None]
